FAERS Safety Report 5460401-X (Version None)
Quarter: 2007Q3

REPORT INFORMATION
  Report Type: 
  Country: None (occurrence: None)
  Receive Date: 20070919
  Receipt Date: 20070702
  Transmission Date: 20080115
  Serious: Yes (Hospitalization)
  Sender: FDA-Public Use
  Company Number: US-ASTRAZENECA-2007UW15780

PATIENT
  Age: 475 Month
  Sex: Female
  Weight: 104.5 kg

DRUGS (3)
  1. SEROQUEL [Suspect]
     Indication: BIPOLAR DISORDER
     Dosage: 100 - 400 MG
     Dates: start: 20010601, end: 20030101
  2. SEROQUEL [Suspect]
     Indication: DEPRESSION
     Dosage: 100 - 400 MG
     Dates: start: 20010601, end: 20030101
  3. RISPERDAL [Concomitant]
     Dosage: 2 - 4 MG
     Dates: start: 19960101, end: 20010101

REACTIONS (1)
  - PANCREATITIS ACUTE [None]
